FAERS Safety Report 11037463 (Version 1)
Quarter: 2015Q2

REPORT INFORMATION
  Report Type: Spontaneous
  Country: US (occurrence: None)
  Receive Date: 20150415
  Receipt Date: 20150415
  Transmission Date: 20150821
  Serious: Yes (Disabling)
  Sender: FDA-Public Use
  Company Number: None

PATIENT
  Age: 52 Year
  Sex: Female
  Weight: 54.43 kg

DRUGS (15)
  1. BUTRANS [Suspect]
     Active Substance: BUPRENORPHINE
     Indication: SPINAL COMPRESSION FRACTURE
     Dosage: EVERY SEVEN DAYS, APPLIED AS MEDICATED PATCH TO SKIN
     Route: 061
     Dates: start: 20150309, end: 20150406
  2. NORTRIPTYLINE [Concomitant]
     Active Substance: NORTRIPTYLINE
  3. B VIT COMPLEX [Concomitant]
  4. LASIX [Concomitant]
     Active Substance: FUROSEMIDE
  5. DALIRESP [Concomitant]
     Active Substance: ROFLUMILAST
  6. NAPROXEN. [Concomitant]
     Active Substance: NAPROXEN
  7. VITAMIN C [Concomitant]
     Active Substance: ASCORBIC ACID
  8. TENS UNIT [Concomitant]
  9. ADVAIR DISCUS 500 [Concomitant]
  10. MULTIVIT [Concomitant]
     Active Substance: VITAMINS
  11. COMBIVENT [Concomitant]
     Active Substance: ALBUTEROL SULFATE\IPRATROPIUM BROMIDE
  12. EFFEXOR [Concomitant]
     Active Substance: VENLAFAXINE HYDROCHLORIDE
  13. IBUPROFEN. [Concomitant]
     Active Substance: IBUPROFEN
  14. ASPIRIN. [Concomitant]
     Active Substance: ASPIRIN
  15. SPIRIVA [Concomitant]
     Active Substance: TIOTROPIUM BROMIDE MONOHYDRATE

REACTIONS (4)
  - Pruritus [None]
  - Rash [None]
  - Depression [None]
  - Respiratory disorder [None]

NARRATIVE: CASE EVENT DATE: 20150302
